FAERS Safety Report 5086135-1 (Version None)
Quarter: 2006Q3

REPORT INFORMATION
  Report Type: 
  Country: None (occurrence: None)
  Receive Date: 20060818
  Receipt Date: 20060805
  Transmission Date: 20061208
  Serious: Yes (Other)
  Sender: FDA-Public Use
  Company Number: 2006089887

PATIENT
  Age: 59 Year
  Sex: Female
  Weight: 49 kg

DRUGS (14)
  1. SILDENAFIL [Suspect]
     Indication: PULMONARY HYPERTENSION
     Dosage: 37.5 MG (12.5 MG, 3 IN 1 D), ORAL
     Route: 048
     Dates: start: 20030208
  2. BERAPROST SODIUM                 (BERAPROST SODIUM) [Concomitant]
  3. OXYGEN         (OXYGEN) [Concomitant]
  4. EBASTEL                    (EBASTINE) [Concomitant]
  5. ALLOPURINOL [Concomitant]
  6. NEUROTROPIN                                   (ORGAN LYSATE, STANDARDI [Concomitant]
  7. ALFAROL (ALFACALCIDOL) [Concomitant]
  8. NORVASC [Concomitant]
  9. LASIX [Concomitant]
  10. EURODIN (ESTAZOLAM) [Concomitant]
  11. ALMARL (AROTINOLOL HYDROCHLORIDE) [Concomitant]
  12. GASTROM (ECABET MONOSODIUM) [Concomitant]
  13. LEVOTHYROXINE SODIUM [Concomitant]
  14. VALSARTAN [Concomitant]

REACTIONS (2)
  - CELLULITIS [None]
  - GLAUCOMA [None]
